FAERS Safety Report 17284599 (Version 2)
Quarter: 2020Q1

REPORT INFORMATION
  Report Type: Report from Study
  Country: NL (occurrence: NL)
  Receive Date: 20200117
  Receipt Date: 20200122
  Transmission Date: 20200409
  Serious: Yes (Life-Threatening, Hospitalization)
  Sender: FDA-Public Use
  Company Number: NVSC2020NL008058

PATIENT
  Age: 75 Year
  Sex: Female

DRUGS (2)
  1. ACLASTA [Suspect]
     Active Substance: ZOLEDRONIC ACID
     Indication: OSTEOPOROSIS
     Dosage: 5 MG, QD
     Route: 042
     Dates: start: 20150115
  2. ACLASTA [Suspect]
     Active Substance: ZOLEDRONIC ACID
     Dosage: 5 MG, QD
     Route: 042
     Dates: start: 20190107

REACTIONS (4)
  - Back pain [Unknown]
  - Spinal compression fracture [Unknown]
  - Atrial fibrillation [Unknown]
  - Inappropriate schedule of product administration [Unknown]

NARRATIVE: CASE EVENT DATE: 20200107
